FAERS Safety Report 9292523 (Version 3)
Quarter: 2013Q2

REPORT INFORMATION
  Report Type: Spontaneous
  Country: ES (occurrence: ES)
  Receive Date: 20130516
  Receipt Date: 20130612
  Transmission Date: 20140414
  Serious: Yes (Hospitalization)
  Sender: FDA-Public Use
  Company Number: ES-BRISTOL-MYERS SQUIBB COMPANY-18878736

PATIENT
  Age: 69 Year
  Sex: Male

DRUGS (4)
  1. ELIQUIS [Suspect]
     Indication: HIP SURGERY
     Route: 048
     Dates: start: 20130501, end: 20130502
  2. GLUCOSAMINE [Concomitant]
  3. CELEBREX [Concomitant]
  4. SILODOSIN [Concomitant]

REACTIONS (1)
  - Embolism venous [Recovering/Resolving]
